FAERS Safety Report 15885441 (Version 5)
Quarter: 2019Q4

REPORT INFORMATION
  Report Type: Report from Study
  Country: CZ (occurrence: CZ)
  Receive Date: 20190129
  Receipt Date: 20191216
  Transmission Date: 20200122
  Serious: Yes (Hospitalization, Other)
  Sender: FDA-Public Use
  Company Number: PHHY2018CZ015297

PATIENT
  Age: 16 Year
  Sex: Male
  Weight: 57 kg

DRUGS (10)
  1. TRAMETINIB [Suspect]
     Active Substance: TRAMETINIB
     Dosage: UNK
     Route: 048
     Dates: end: 20190305
  2. TRAMETINIB [Suspect]
     Active Substance: TRAMETINIB
     Dosage: 1 MG, QD
     Route: 048
     Dates: end: 20191115
  3. SUMETROLIM [Concomitant]
     Active Substance: SULFAMETHOXAZOLE\TRIMETHOPRIM
     Indication: PROPHYLAXIS
     Dosage: 720 MG, BID (ONLY EACH MONDAY AND TUESDAY WEEKLY)
     Route: 065
  4. ZOLOFT [Concomitant]
     Active Substance: SERTRALINE HYDROCHLORIDE
     Indication: ANXIETY
     Dosage: 50 MG, QD
     Route: 065
     Dates: start: 20191115
  5. TRAMETINIB [Suspect]
     Active Substance: TRAMETINIB
     Indication: ANAPLASTIC ASTROCYTOMA
     Dosage: 1.5 MG, QD
     Route: 048
     Dates: start: 20180109, end: 20180306
  6. DABRAFENIB [Suspect]
     Active Substance: DABRAFENIB
     Indication: ANAPLASTIC ASTROCYTOMA
     Dosage: UNK
     Route: 048
     Dates: start: 20180109, end: 20180306
  7. ZOLOFT [Concomitant]
     Active Substance: SERTRALINE HYDROCHLORIDE
     Indication: DEPRESSION
  8. TRAMETINIB [Suspect]
     Active Substance: TRAMETINIB
     Dosage: UNK
     Route: 048
     Dates: end: 20181219
  9. TRAMETINIB [Suspect]
     Active Substance: TRAMETINIB
     Dosage: 1 MG, QD
     Route: 048
     Dates: start: 20190109
  10. TRAMETINIB [Suspect]
     Active Substance: TRAMETINIB
     Dosage: UNK
     Route: 048
     Dates: end: 20191112

REACTIONS (16)
  - Seizure [Recovering/Resolving]
  - Erythema [Recovered/Resolved]
  - Growth retardation [Unknown]
  - Blood urea increased [Unknown]
  - Fungal skin infection [Recovered/Resolved]
  - Herpes zoster [Recovered/Resolved]
  - Hair colour changes [Unknown]
  - Conjunctivitis allergic [Recovered/Resolved]
  - Otitis media [Recovered/Resolved]
  - Paronychia [Recovered/Resolved]
  - Furuncle [Recovering/Resolving]
  - Folliculitis [Unknown]
  - Rhinitis allergic [Recovered/Resolved]
  - Epilepsy [Recovering/Resolving]
  - Dermatitis acneiform [Recovered/Resolved]
  - Chills [Unknown]

NARRATIVE: CASE EVENT DATE: 20180111
